FAERS Safety Report 7133162-6 (Version None)
Quarter: 2010Q4

REPORT INFORMATION
  Report Type: 
  Country: None (occurrence: None)
  Receive Date: 20101117
  Receipt Date: 20101110
  Transmission Date: 20110411
  Serious: Yes (Other)
  Sender: FDA-Public Use
  Company Number: A0881381A

PATIENT
  Sex: Female

DRUGS (4)
  1. BENZOYL PEROXIDE (FORMULATION UNKNOWN) (BENZOYL PEROXIDE) [Suspect]
     Indication: PRODUCT USED FOR UNKNOWN INDICATION
     Dosage: TOPICAL
     Route: 061
     Dates: start: 20100718, end: 20100808
  2. BENZOYL PEROXIDE (FORMULATION UNKNOWN) (BENZOYL PEROXIDE) [Suspect]
     Indication: PRODUCT USED FOR UNKNOWN INDICATION
     Dosage: TOPICAL
     Route: 061
     Dates: start: 20100718, end: 20100808
  3. SALICYLIC ACID (FORMULATION UNKNOWN) (SALICYLIC ACID) [Suspect]
     Indication: PRODUCT USED FOR UNKNOWN INDICATION
     Dosage: TOPICAL
     Route: 061
     Dates: start: 20100718, end: 20100808
  4. BENZOYL PEROXIDE (FORMULATION UNKNOWN) (BENZOYL PEROXIDE) [Suspect]
     Indication: PRODUCT USED FOR UNKNOWN INDICATION
     Dosage: TOPICAL
     Route: 061
     Dates: start: 20100718, end: 20100808

REACTIONS (10)
  - DRY SKIN [None]
  - ERYTHEMA [None]
  - FACIAL PAIN [None]
  - HAEMORRHAGE [None]
  - PRURITUS [None]
  - SKIN DISORDER [None]
  - SKIN EXFOLIATION [None]
  - SKIN IRRITATION [None]
  - SKIN REACTION [None]
  - SPEECH DISORDER [None]
